FAERS Safety Report 18681727 (Version 1)
Quarter: 2020Q4

REPORT INFORMATION
  Report Type: Spontaneous
  Country: US (occurrence: US)
  Receive Date: 20201230
  Receipt Date: 20201230
  Transmission Date: 20210114
  Serious: No
  Sender: FDA-Public Use
  Company Number: US-APOTEX-2020AP023541

PATIENT
  Age: 59 Year

DRUGS (5)
  1. HYDROXYZINE [Suspect]
     Active Substance: HYDROXYZINE HYDROCHLORIDE
     Indication: AQUAGENIC PRURITUS
     Dosage: 20 MILLIGRAM, QD
     Route: 065
  2. GABAPENTIN. [Suspect]
     Active Substance: GABAPENTIN
     Indication: AQUAGENIC PRURITUS
     Dosage: UNK
     Route: 065
  3. BUTORPHANOL [Suspect]
     Active Substance: BUTORPHANOL
     Indication: AQUAGENIC PRURITUS
     Dosage: UNK UNK, PRN (UPTO EVERY 4 HOURS)
     Route: 045
  4. NALTREXONE [Suspect]
     Active Substance: NALTREXONE
     Indication: AQUAGENIC PRURITUS
     Dosage: 50 MILLIGRAM
     Route: 065
  5. DESLORATADINE. [Suspect]
     Active Substance: DESLORATADINE
     Indication: AQUAGENIC PRURITUS
     Dosage: 60 MILLIGRAM, QD
     Route: 065

REACTIONS (3)
  - Off label use [Unknown]
  - Insomnia [Unknown]
  - Drug ineffective [Unknown]
